FAERS Safety Report 7105103-9 (Version None)
Quarter: 2010Q4

REPORT INFORMATION
  Report Type: 
  Country: None (occurrence: None)
  Receive Date: 20101110
  Receipt Date: 20101026
  Transmission Date: 20110411
  Serious: Yes (Hospitalization)
  Sender: FDA-Public Use
  Company Number: 2010004476

PATIENT
  Age: 79 Year
  Sex: Male

DRUGS (1)
  1. TARCEVA (ERLOTINIB) (TABLET) (ERLOTINIB) [Suspect]
     Indication: LUNG NEOPLASM MALIGNANT
     Dosage: 150 MG, EVERY DAY, ORAL
     Route: 048
     Dates: start: 20101004

REACTIONS (5)
  - DIARRHOEA [None]
  - DYSPNOEA [None]
  - FATIGUE [None]
  - SOMNOLENCE [None]
  - VISION BLURRED [None]
